FAERS Safety Report 19393407 (Version 1)
Quarter: 2021Q2

REPORT INFORMATION
  Report Type: Spontaneous
  Country: US (occurrence: US)
  Receive Date: 20210608
  Receipt Date: 20210608
  Transmission Date: 20210717
  Serious: No
  Sender: FDA-Public Use
  Company Number: None

PATIENT
  Age: 32 Year
  Sex: Female
  Weight: 72 kg

DRUGS (2)
  1. KYLEENA [Suspect]
     Active Substance: LEVONORGESTREL
     Indication: CONTRACEPTION
     Dosage: ?          QUANTITY:1 DEVICE;?
     Route: 067
     Dates: start: 20170221
  2. SYNTHROID [Concomitant]
     Active Substance: LEVOTHYROXINE SODIUM

REACTIONS (4)
  - Ectopic pregnancy [None]
  - Ovarian cyst [None]
  - Pregnancy test positive [None]
  - Abdominal pain [None]

NARRATIVE: CASE EVENT DATE: 20210524
